FAERS Safety Report 9306791 (Version 3)
Quarter: 2013Q3

REPORT INFORMATION
  Report Type: Spontaneous
  Country: US (occurrence: None)
  Receive Date: 20130321
  Receipt Date: 20130815
  Transmission Date: 20140515
  Serious: Yes (Other)
  Sender: FDA-Public Use
  Company Number: ADR-2012-01021

PATIENT
  Sex: Male

DRUGS (4)
  1. BACLOFEN [Suspect]
     Indication: PAIN
  2. BACLOFEN [Suspect]
     Indication: BACK PAIN
  3. FENTANYL [Concomitant]
  4. BUPIVACAINE [Concomitant]

REACTIONS (16)
  - Product quality issue [None]
  - Pain [None]
  - Depression [None]
  - Emotional disorder [None]
  - Suicidal behaviour [None]
  - Vomiting [None]
  - Drug withdrawal syndrome [None]
  - Inadequate analgesia [None]
  - Device ineffective [None]
  - Memory impairment [None]
  - Anxiety [None]
  - Lethargy [None]
  - Treatment noncompliance [None]
  - Atrial fibrillation [None]
  - Ill-defined disorder [None]
  - Diarrhoea [None]
